FAERS Safety Report 4662222-4 (Version None)
Quarter: 2005Q2

REPORT INFORMATION
  Report Type: 
  Country: None (occurrence: None)
  Receive Date: 20050512
  Receipt Date: 20050429
  Transmission Date: 20051028
  Serious: Yes (Other)
  Sender: FDA-Public Use
  Company Number: 2005068188

PATIENT
  Age: 37 Year
  Sex: Male
  Weight: 95.2554 kg

DRUGS (1)
  1. DILANTIN KAPSEAL [Suspect]
     Indication: GRAND MAL CONVULSION
     Dosage: 200MG AM; 300MG PM (500MG TOTAL)
     Dates: start: 19850701

REACTIONS (2)
  - GRAND MAL CONVULSION [None]
  - PHARMACEUTICAL PRODUCT COMPLAINT [None]
